FAERS Safety Report 16153086 (Version 2)
Quarter: 2019Q2

REPORT INFORMATION
  Report Type: Spontaneous
  Country: US (occurrence: US)
  Receive Date: 20190403
  Receipt Date: 20190409
  Transmission Date: 20190711
  Serious: No
  Sender: FDA-Public Use
  Company Number: US-GILEAD-2019-0400071

PATIENT
  Age: 26 Year
  Sex: Male

DRUGS (1)
  1. TRUVADA [Suspect]
     Active Substance: EMTRICITABINE\TENOFOVIR DISOPROXIL FUMARATE
     Indication: OFF LABEL USE
     Dosage: UNK
     Route: 065
     Dates: start: 201902, end: 201903

REACTIONS (1)
  - Off label use [Unknown]
